FAERS Safety Report 8008887-0 (Version None)
Quarter: 2011Q4

REPORT INFORMATION
  Report Type: 
  Country: None (occurrence: None)
  Receive Date: 20111221
  Receipt Date: 20111213
  Transmission Date: 20120403
  Serious: Yes (Hospitalization)
  Sender: FDA-Public Use
  Company Number: 2011MA017616

PATIENT
  Age: 90 Year
  Sex: Female

DRUGS (6)
  1. METHIZOL [Concomitant]
  2. (NO PREF. NAME) [Suspect]
     Dosage: 25 MG;;PO
     Route: 048
     Dates: start: 20111005, end: 20111007
  3. LISINOPRIL [Suspect]
     Dosage: ;PO
     Route: 048
  4. HALOPERIDOL LACTATE [Suspect]
     Dosage: 2 MG;;PO
     Route: 048
     Dates: start: 20111002, end: 20111007
  5. TORSEMIDE [Suspect]
     Dosage: 15 MG;;PO
     Route: 048
  6. CARVEDILOL [Suspect]
     Dosage: 25 MG;;PO
     Route: 048

REACTIONS (4)
  - SYNCOPE [None]
  - HEART RATE DECREASED [None]
  - RESPIRATORY RATE INCREASED [None]
  - CORONARY ARTERY EMBOLISM [None]
